FAERS Safety Report 10793913 (Version 1)
Quarter: 2015Q1

REPORT INFORMATION
  Report Type: Spontaneous
  Country: US (occurrence: US)
  Receive Date: 20150213
  Receipt Date: 20150213
  Transmission Date: 20150721
  Serious: Yes (Hospitalization, Other)
  Sender: FDA-Public Use
  Company Number: US-PFIZER INC-2015050168

PATIENT
  Age: 27 Year
  Sex: Male
  Weight: 56 kg

DRUGS (1)
  1. ROBITUSSIN (GUAIFENESIN) [Suspect]
     Active Substance: GUAIFENESIN
     Indication: EUPHORIC MOOD
     Dosage: THE WHOLE BOTTLE

REACTIONS (7)
  - Loss of consciousness [Not Recovered/Not Resolved]
  - Schizophreniform disorder [Not Recovered/Not Resolved]
  - Hallucination [Not Recovered/Not Resolved]
  - Paranoia [Unknown]
  - Dependence [Unknown]
  - Abnormal behaviour [Not Recovered/Not Resolved]
  - Drug abuse [Not Recovered/Not Resolved]
